FAERS Safety Report 10688742 (Version 1)
Quarter: 2015Q1

REPORT INFORMATION
  Report Type: Spontaneous
  Country: BR (occurrence: BR)
  Receive Date: 20150103
  Receipt Date: 20150103
  Transmission Date: 20150720
  Serious: Yes (Death, Other)
  Sender: FDA-Public Use
  Company Number: BR-MYLANLABS-2014M1015489

PATIENT
  Age: 54 Year
  Sex: Female

DRUGS (12)
  1. PHENYTOIN. [Concomitant]
     Active Substance: PHENYTOIN
     Indication: SEIZURE
     Dosage: 2 ML, Q8H
     Route: 042
     Dates: start: 20141118, end: 20141214
  2. NOREPINEPHRINE [Concomitant]
     Active Substance: NOREPINEPHRINE\NOREPINEPHRINE BITARTRATE
     Indication: HAEMODYNAMIC INSTABILITY
     Dosage: 5 AMP IN 250ML SALINE
     Route: 065
     Dates: start: 20141122, end: 20141219
  3. DIPYRONE [Concomitant]
     Active Substance: DIPYRONE
     Indication: PAIN
  4. MANNITOL. [Concomitant]
     Active Substance: MANNITOL
     Indication: BRAIN OEDEMA
     Dosage: 10 ML, Q6H
     Route: 042
     Dates: start: 20141118, end: 20141214
  5. LOSARTAN [Concomitant]
     Active Substance: LOSARTAN
     Indication: HYPERTENSION
     Dosage: 50 MG, BID
     Dates: start: 20141201, end: 20141214
  6. FENTANYL. [Concomitant]
     Active Substance: FENTANYL
     Indication: SEDATION
     Dosage: 5 AMP IN 250ML SALINE
     Route: 065
     Dates: start: 20141122, end: 20141219
  7. PIPERACILLIN/TAZOBACTAM [Suspect]
     Active Substance: PIPERACILLIN SODIUM\TAZOBACTAM SODIUM
     Indication: PROTEUS INFECTION
     Dosage: 1 VIAL/Q6H
     Route: 042
     Dates: start: 20141130, end: 20141212
  8. ACETAZOLAMIDE. [Concomitant]
     Active Substance: ACETAZOLAMIDE
     Indication: SEIZURE
     Dosage: 250 MG, BID
     Route: 065
     Dates: start: 20141119, end: 20141214
  9. ONDANSETRON [Concomitant]
     Active Substance: ONDANSETRON
     Indication: VOMITING
     Dosage: 1 AMP, Q8H
     Route: 042
     Dates: start: 20141118, end: 20141214
  10. NIMODIPINE. [Concomitant]
     Active Substance: NIMODIPINE
     Indication: SUBARACHNOID HAEMORRHAGE
     Dosage: 40 MG, Q4H
     Route: 065
     Dates: start: 20141119, end: 20141214
  11. DIPYRONE [Concomitant]
     Active Substance: DIPYRONE
     Indication: PYREXIA
     Dosage: 1 AMP Q6 AS NECESSARY
     Route: 042
     Dates: start: 20141119, end: 20141214
  12. OMEPRAZOLE. [Concomitant]
     Active Substance: OMEPRAZOLE
     Indication: PROPHYLAXIS
     Dosage: 1 VIAL BID
     Dates: start: 20141118, end: 20141219

REACTIONS (2)
  - Cardiac arrest [Fatal]
  - Stevens-Johnson syndrome [Not Recovered/Not Resolved]

NARRATIVE: CASE EVENT DATE: 20141209
